FAERS Safety Report 10510107 (Version 1)
Quarter: 2014Q4

REPORT INFORMATION
  Report Type: Spontaneous
  Country: US (occurrence: None)
  Receive Date: 20141009
  Receipt Date: 20141009
  Transmission Date: 20150528
  Serious: Yes (Hospitalization)
  Sender: FDA-Public Use
  Company Number: None

PATIENT
  Age: 86 Year
  Sex: Male
  Weight: 113.8 kg

DRUGS (2)
  1. FUROSEMIDE. [Suspect]
     Active Substance: FUROSEMIDE
     Indication: CARDIAC FAILURE
     Dosage: MG, PO
     Route: 048
     Dates: start: 19960328
  2. FOSINOPRIL [Suspect]
     Active Substance: FOSINOPRIL
     Indication: CARDIAC FAILURE
     Dosage: MG, PO
     Route: 048
     Dates: start: 19950911, end: 20130929

REACTIONS (13)
  - Feeling hot [None]
  - Vomiting [None]
  - Fall [None]
  - Head injury [None]
  - Blood urea increased [None]
  - Hyperkalaemia [None]
  - Weight decreased [None]
  - Dizziness [None]
  - Decreased appetite [None]
  - Blood creatine increased [None]
  - Headache [None]
  - Dyspnoea [None]
  - Nausea [None]

NARRATIVE: CASE EVENT DATE: 20131127
